FAERS Safety Report 8157220-2 (Version None)
Quarter: 2012Q1

REPORT INFORMATION
  Report Type: 
  Country: None (occurrence: None)
  Receive Date: 20120222
  Receipt Date: 20120222
  Transmission Date: 20120608
  Serious: Yes (Other)
  Sender: FDA-Public Use
  Company Number: None

PATIENT
  Age: 22 Year
  Sex: Male
  Weight: 90.718 kg

DRUGS (1)
  1. SINGULAIR [Suspect]
     Indication: ASTHMA
     Route: 048
     Dates: start: 20010122, end: 20120214

REACTIONS (7)
  - AGGRESSION [None]
  - ANXIETY [None]
  - PARTNER STRESS [None]
  - THINKING ABNORMAL [None]
  - STRESS [None]
  - EDUCATIONAL PROBLEM [None]
  - IMPAIRED WORK ABILITY [None]
